FAERS Safety Report 8117809-3 (Version None)
Quarter: 2011Q4

REPORT INFORMATION
  Report Type: 
  Country: None (occurrence: None)
  Receive Date: 20111227
  Receipt Date: 20110921
  Transmission Date: 20120403
  Serious: No
  Sender: FDA-Public Use
  Company Number: PHHY2011US69164

PATIENT
  Age: 45 Year
  Sex: Female
  Weight: 74.8 kg

DRUGS (5)
  1. VITAMIN D [Concomitant]
  2. GILENYA [Suspect]
     Dosage: 0.5 MG, QD, ORAL
     Route: 048
  3. ESTRADIOL [Concomitant]
  4. OXYBUTYNIN [Concomitant]
  5. NAPROXEN SOD (NAPROXEN) [Concomitant]

REACTIONS (2)
  - CONSTIPATION [None]
  - ABDOMINAL DISCOMFORT [None]
